FAERS Safety Report 16326346 (Version 5)
Quarter: 2021Q3

REPORT INFORMATION
  Report Type: Spontaneous
  Country: GB (occurrence: GB)
  Receive Date: 20190517
  Receipt Date: 20210811
  Transmission Date: 20211014
  Serious: Yes (Death, Other)
  Sender: FDA-Public Use
  Company Number: GB-PFIZER INC-2019211267

PATIENT
  Age: 39 Year
  Sex: Male
  Weight: 91 kg

DRUGS (15)
  1. PREGABALIN. [Suspect]
     Active Substance: PREGABALIN
     Dosage: UNK
  2. TEGRETOL [Concomitant]
     Active Substance: CARBAMAZEPINE
     Dosage: UNK
  3. TRAZODONE [Concomitant]
     Active Substance: TRAZODONE HYDROCHLORIDE
     Dosage: UNK
  4. CODEINE [Suspect]
     Active Substance: CODEINE
     Dosage: UNK
  5. DIAZEPAM. [Suspect]
     Active Substance: DIAZEPAM
     Dosage: UNK
  6. NICOTINE. [Concomitant]
     Active Substance: NICOTINE
     Dosage: UNK
  7. BUPRENORPHINE. [Interacting]
     Active Substance: BUPRENORPHINE
     Dosage: UNK
  8. PARACETAMOL [Concomitant]
     Active Substance: ACETAMINOPHEN
     Dosage: UNK
  9. PAPAVERINE [Concomitant]
     Active Substance: PAPAVERINE
     Dosage: UNK
  10. CAFFEINE [CAFFEINE CITRATE] [Concomitant]
     Active Substance: CAFFEINE CITRATE
     Dosage: UNK
  11. MORPHINE SULFATE. [Suspect]
     Active Substance: MORPHINE SULFATE
     Dosage: UNK
  12. ALPRAZOLAM. [Concomitant]
     Active Substance: ALPRAZOLAM
     Dosage: UNK
  13. DABIGATRAN [Concomitant]
     Active Substance: DABIGATRAN
     Dosage: UNK
  14. PROPRANOLOL [Concomitant]
     Active Substance: PROPRANOLOL HYDROCHLORIDE
     Dosage: UNK
  15. NOSCAPINE [Concomitant]
     Active Substance: NOSCAPINE
     Dosage: UNK

REACTIONS (6)
  - Off label use [Fatal]
  - Drug interaction [Fatal]
  - Toxicity to various agents [Fatal]
  - Alcohol interaction [Fatal]
  - Intentional product misuse [Fatal]
  - Overdose [Fatal]
